FAERS Safety Report 6326761-2 (Version None)
Quarter: 2009Q3

REPORT INFORMATION
  Report Type: 
  Country: None (occurrence: None)
  Receive Date: 20090825
  Receipt Date: 20090813
  Transmission Date: 20100115
  Serious: Yes (Other)
  Sender: FDA-Public Use
  Company Number: HQWYE172010AUG04

PATIENT
  Sex: Female

DRUGS (9)
  1. PREMPRO [Suspect]
     Indication: HORMONE REPLACEMENT THERAPY
  2. PREMARIN [Suspect]
  3. MEDROXYPROGESTERONE ACETATE [Suspect]
  4. PROVERA [Suspect]
  5. ESTRATEST [Suspect]
  6. CYCRIN [Suspect]
  7. PREMARIN [Suspect]
  8. ESTROGENS [Suspect]
  9. ESTRACE [Suspect]

REACTIONS (1)
  - BREAST CANCER RECURRENT [None]
